FAERS Safety Report 9857901 (Version 2)
Quarter: 2014Q3

REPORT INFORMATION
  Report Type: Report from Study
  Country: US (occurrence: US)
  Receive Date: 20140131
  Receipt Date: 20140916
  Transmission Date: 20150326
  Serious: Yes (Other)
  Sender: FDA-Public Use
  Company Number: US-ROCHE-1340451

PATIENT
  Sex: Male
  Weight: 38 kg

DRUGS (2)
  1. NUTROPIN [Suspect]
     Active Substance: SOMATROPIN
     Dosage: EVERY DAY
     Route: 058
     Dates: start: 20131220
  2. NUTROPIN [Suspect]
     Active Substance: SOMATROPIN
     Indication: GROWTH HORMONE DEFICIENCY
     Dosage: EVERY DAY
     Route: 058
     Dates: start: 20090730, end: 20131220

REACTIONS (4)
  - Fear of injection [Unknown]
  - Insomnia [Unknown]
  - Fatigue [Unknown]
  - Thyroxine decreased [Unknown]
